FAERS Safety Report 6836846-X (Version None)
Quarter: 2010Q3

REPORT INFORMATION
  Report Type: 
  Country: None (occurrence: None)
  Receive Date: 20100713
  Receipt Date: 20070430
  Transmission Date: 20110219
  Serious: No
  Sender: FDA-Public Use
  Company Number: US-PFIZER INC-2007035573

PATIENT
  Age: 63 Year
  Sex: Female
  Weight: 65.9 kg

DRUGS (4)
  1. CHANTIX [Suspect]
     Indication: SMOKING CESSATION THERAPY
     Dates: start: 20070425
  2. LOVASTATIN [Concomitant]
  3. ATENOLOL [Concomitant]
  4. COZAAR [Concomitant]

REACTIONS (1)
  - DIARRHOEA [None]
